FAERS Safety Report 9969760 (Version 1)
Quarter: 2014Q1

REPORT INFORMATION
  Report Type: Spontaneous
  Country: US (occurrence: US)
  Receive Date: 20140306
  Receipt Date: 20140306
  Transmission Date: 20141002
  Serious: No
  Sender: FDA-Public Use
  Company Number: US-JNJFOC-20140213902

PATIENT
  Age: 44 Year
  Sex: Male

DRUGS (1)
  1. DURAGESIC [Suspect]
     Indication: PAIN
     Route: 062
     Dates: start: 201312

REACTIONS (3)
  - Product quality issue [Not Recovered/Not Resolved]
  - Drug dose omission [Recovered/Resolved]
  - Product quality issue [Unknown]
